FAERS Safety Report 6725317-7 (Version None)
Quarter: 2010Q2

REPORT INFORMATION
  Report Type: 
  Country: None (occurrence: None)
  Receive Date: 20100512
  Receipt Date: 20100430
  Transmission Date: 20101027
  Serious: Yes (Hospitalization)
  Sender: FDA-Public Use
  Company Number: MOZO-1000147

PATIENT
  Age: 71 Year
  Sex: Male
  Weight: 86.7 kg

DRUGS (4)
  1. MOZOBIL [Suspect]
     Indication: HAEMATOPOIETIC STEM CELL MOBILISATION
     Dosage: 1.04ML, QD, SUBCUTANEOUS
     Route: 058
     Dates: start: 20081201, end: 20081204
  2. MOZOBIL [Suspect]
     Indication: MULTIPLE MYELOMA
     Dosage: 1.04ML, QD, SUBCUTANEOUS
     Route: 058
     Dates: start: 20081201, end: 20081204
  3. SIMVASTATIN [Concomitant]
  4. SODIUM CARBONATE (SODIUM BICARBONATE) [Concomitant]

REACTIONS (1)
  - ACUTE MYOCARDIAL INFARCTION [None]
